FAERS Safety Report 20010060 (Version 1)
Quarter: 2021Q4

REPORT INFORMATION
  Report Type: Other
  Country: US (occurrence: US)
  Receive Date: 20211029
  Receipt Date: 20211029
  Transmission Date: 20220303
  Serious: Yes (Other)
  Sender: FDA-Public Use
  Company Number: US-ROCHE-2941149

PATIENT
  Sex: Female

DRUGS (2)
  1. XELODA [Suspect]
     Active Substance: CAPECITABINE
     Indication: Colorectal cancer metastatic
     Dosage: TAKE TWO 500MG TABLETS AND TWO 150MG TABLETS BY MOUTH TWICE A DAY 2 WEEK(S) ON, 1 WEEK(S) OFF
     Route: 048
  2. XELODA [Suspect]
     Active Substance: CAPECITABINE
     Indication: Rectal cancer
     Dosage: TAKE TWO 500MG TABLETS AND TWO 150MG TABLETS BY MOUTH TWICE A DAY 2 WEEK(S) ON, 1 WEEK(S) OFF
     Route: 048

REACTIONS (6)
  - Brain neoplasm malignant [Unknown]
  - Nausea [Unknown]
  - Diarrhoea [Unknown]
  - Sinus disorder [Unknown]
  - Dehydration [Unknown]
  - Tooth disorder [Unknown]
